FAERS Safety Report 21782978 (Version 1)
Quarter: 2022Q4

REPORT INFORMATION
  Report Type: Report from Study
  Country: US (occurrence: US)
  Receive Date: 20221227
  Receipt Date: 20221227
  Transmission Date: 20230113
  Serious: No
  Sender: FDA-Public Use
  Company Number: US-ABBVIE-4211515

PATIENT
  Sex: Female

DRUGS (2)
  1. HUMIRA [Suspect]
     Active Substance: ADALIMUMAB
     Indication: Crohn^s disease
     Route: 058
     Dates: start: 2021
  2. HUMIRA [Suspect]
     Active Substance: ADALIMUMAB
     Route: 058

REACTIONS (7)
  - Rheumatoid arthritis [Recovering/Resolving]
  - Drug level decreased [Unknown]
  - Inflammation [Unknown]
  - Pain [Unknown]
  - Bone disorder [Unknown]
  - Gait inability [Unknown]
  - Weight increased [Unknown]
